FAERS Safety Report 14384101 (Version 6)
Quarter: 2018Q4

REPORT INFORMATION
  Report Type: Spontaneous
  Country: US (occurrence: US)
  Receive Date: 20180115
  Receipt Date: 20181201
  Transmission Date: 20190204
  Serious: No
  Sender: FDA-Public Use
  Company Number: US-PFIZER INC-2018014643

PATIENT
  Age: 43 Year
  Sex: Female

DRUGS (2)
  1. XELJANZ XR [Suspect]
     Active Substance: TOFACITINIB CITRATE
     Indication: RHEUMATOID ARTHRITIS
  2. XELJANZ XR [Suspect]
     Active Substance: TOFACITINIB CITRATE
     Indication: CHRONIC KIDNEY DISEASE
     Dosage: 11 MG, 1X/DAY
     Route: 048
     Dates: start: 201705

REACTIONS (9)
  - Skin fissures [Recovered/Resolved]
  - Musculoskeletal pain [Unknown]
  - Product dose omission [Unknown]
  - Diarrhoea [Recovered/Resolved]
  - Pain in extremity [Unknown]
  - Arthralgia [Unknown]
  - Erythema [Unknown]
  - Condition aggravated [Unknown]
  - Back pain [Unknown]
